FAERS Safety Report 25665049 (Version 1)
Quarter: 2025Q3

REPORT INFORMATION
  Report Type: Spontaneous
  Country: US (occurrence: US)
  Receive Date: 20250811
  Receipt Date: 20250811
  Transmission Date: 20251021
  Serious: Yes (Other)
  Sender: MYLAN
  Company Number: US-MYLANLABS-2025M1067416

PATIENT
  Sex: Male
  Weight: 105.69 kg

DRUGS (4)
  1. YUPELRI [Suspect]
     Active Substance: REVEFENACIN
     Indication: Chronic obstructive pulmonary disease
     Dosage: 175 MICROGRAM PER 3 MILLILITER, QD (1 VIAL PER DAY)
     Dates: start: 202504, end: 202507
  2. YUPELRI [Suspect]
     Active Substance: REVEFENACIN
     Dosage: 175 MICROGRAM PER 3 MILLILITER, QD (1 VIAL PER DAY)
     Route: 055
     Dates: start: 202504, end: 202507
  3. YUPELRI [Suspect]
     Active Substance: REVEFENACIN
     Dosage: 175 MICROGRAM PER 3 MILLILITER, QD (1 VIAL PER DAY)
     Route: 055
     Dates: start: 202504, end: 202507
  4. YUPELRI [Suspect]
     Active Substance: REVEFENACIN
     Dosage: 175 MICROGRAM PER 3 MILLILITER, QD (1 VIAL PER DAY)
     Dates: start: 202504, end: 202507

REACTIONS (2)
  - Chest pain [Recovered/Resolved]
  - Dysphagia [Recovered/Resolved]

NARRATIVE: CASE EVENT DATE: 20250101
